FAERS Safety Report 5162137-1 (Version None)
Quarter: 2006Q4

REPORT INFORMATION
  Report Type: 
  Country: None (occurrence: None)
  Receive Date: 20061121
  Receipt Date: 20061109
  Transmission Date: 20070319
  Serious: Yes (Hospitalization)
  Sender: FDA-Public Use
  Company Number: FRWYE125009MAY03

PATIENT
  Age: 40 Year
  Sex: Female

DRUGS (3)
  1. SIROLIMUS [Suspect]
     Indication: PROPHYLAXIS AGAINST TRANSPLANT REJECTION
     Dosage: 15 MG DAILY FOR 2 DAYS AND THEN 8 MG DAILY ORAL
     Route: 048
     Dates: start: 20021024, end: 20021211
  2. ATG                (ANTILYMPHOCYTE IMMUNOGLOBULIN (HORSE)) [Concomitant]
  3. MYCOPHENOLATE MOFETIL [Concomitant]

REACTIONS (15)
  - ANAEMIA [None]
  - ARTERIOVENOUS FISTULA [None]
  - BIOPSY KIDNEY ABNORMAL [None]
  - COMPLICATIONS OF TRANSPLANTED KIDNEY [None]
  - CONDITION AGGRAVATED [None]
  - DRUG LEVEL CHANGED [None]
  - EFFUSION [None]
  - HAEMODIALYSIS [None]
  - HAEMORRHAGE [None]
  - KIDNEY FIBROSIS [None]
  - PERITONEAL HAEMATOMA [None]
  - POST PROCEDURAL COMPLICATION [None]
  - RENAL TUBULAR NECROSIS [None]
  - RENAL VESSEL DISORDER [None]
  - URINARY ANASTOMOTIC LEAK [None]
